FAERS Safety Report 7072337-1 (Version None)
Quarter: 2010Q4

REPORT INFORMATION
  Report Type: 
  Country: None (occurrence: None)
  Receive Date: 20101029
  Receipt Date: 20100113
  Transmission Date: 20110411
  Serious: No
  Sender: FDA-Public Use
  Company Number: A0839218A

PATIENT
  Age: 68 Year
  Sex: Male

DRUGS (6)
  1. ADVAIR DISKUS 100/50 [Suspect]
     Indication: CHRONIC OBSTRUCTIVE PULMONARY DISEASE
     Dosage: 1PUFF TWICE PER DAY
     Route: 055
     Dates: start: 20100101
  2. ALBUTEROL [Concomitant]
  3. ATROVENT [Concomitant]
  4. ALLOPURINOL [Concomitant]
  5. PREDNISONE [Concomitant]
     Route: 048
  6. DOXYCYCLINE [Concomitant]
     Dates: start: 20091231

REACTIONS (3)
  - APHONIA [None]
  - DRUG ADMINISTRATION ERROR [None]
  - DYSPHONIA [None]
